FAERS Safety Report 9708988 (Version 2)
Quarter: 2014Q1

REPORT INFORMATION
  Report Type: Spontaneous
  Country: US (occurrence: US)
  Receive Date: 20131125
  Receipt Date: 20140109
  Transmission Date: 20141002
  Serious: No
  Sender: FDA-Public Use
  Company Number: US-009507513-1311USA008112

PATIENT
  Age: 84 Year
  Sex: Female

DRUGS (9)
  1. MIRALAX [Suspect]
     Indication: GASTROINTESTINAL DISORDER
     Dosage: 17 G, TIW
     Route: 048
     Dates: start: 20131109
  2. MIRALAX [Suspect]
     Indication: INTESTINAL OBSTRUCTION
  3. MIRALAX [Suspect]
     Indication: CONSTIPATION
  4. SENOKOT (SENNA) [Suspect]
     Indication: GASTROINTESTINAL DISORDER
     Dosage: 4 DF, TIW
  5. SENOKOT (SENNA) [Suspect]
     Indication: INTESTINAL OBSTRUCTION
  6. SENOKOT (SENNA) [Suspect]
     Indication: CONSTIPATION
  7. PHILLIPS STOOL SOFTENER BULK DOCUSATE [Suspect]
     Indication: GASTROINTESTINAL DISORDER
     Dosage: UNK, BID
  8. PHILLIPS STOOL SOFTENER BULK DOCUSATE [Suspect]
     Indication: INTESTINAL OBSTRUCTION
  9. PHILLIPS STOOL SOFTENER BULK DOCUSATE [Suspect]
     Indication: CONSTIPATION

REACTIONS (4)
  - Gastric disorder [Unknown]
  - Diarrhoea [Unknown]
  - Flatulence [Unknown]
  - Constipation [Unknown]
